FAERS Safety Report 6756336-2 (Version None)
Quarter: 2010Q2

REPORT INFORMATION
  Report Type: 
  Country: None (occurrence: None)
  Receive Date: 20100604
  Receipt Date: 20100603
  Transmission Date: 20101027
  Serious: Yes (Hospitalization)
  Sender: FDA-Public Use
  Company Number: A0862702A

PATIENT
  Age: 38 Year
  Sex: Female

DRUGS (2)
  1. ALLI [Suspect]
     Indication: WEIGHT LOSS DIET
     Route: 048
     Dates: start: 20080201
  2. SAM E [Concomitant]

REACTIONS (8)
  - CEREBRAL HAEMORRHAGE [None]
  - CEREBROVASCULAR SPASM [None]
  - DYSPNOEA [None]
  - HEADACHE [None]
  - NEPHROLITHIASIS [None]
  - TINNITUS [None]
  - VASOCONSTRICTION [None]
  - VOMITING [None]
